FAERS Safety Report 18452202 (Version 1)
Quarter: 2020Q4

REPORT INFORMATION
  Report Type: Spontaneous
  Country: LT (occurrence: LT)
  Receive Date: 20201102
  Receipt Date: 20201102
  Transmission Date: 20210114
  Serious: Yes (Hospitalization)
  Sender: FDA-Public Use
  Company Number: LT-GLAXOSMITHKLINE-LT2020215876

PATIENT
  Age: 11 Year
  Sex: Female
  Weight: 40 kg

DRUGS (1)
  1. TAVEGYL [Suspect]
     Active Substance: CLEMASTINE FUMARATE
     Indication: EPILEPSY
     Dosage: 1 TABLET (SINGLE DOSE)
     Route: 048
     Dates: start: 202010, end: 202010

REACTIONS (3)
  - Dysphagia [Recovered/Resolved]
  - Muscular weakness [Recovered/Resolved]
  - Dyspnoea [Recovered/Resolved]

NARRATIVE: CASE EVENT DATE: 202010
